FAERS Safety Report 5099873-1 (Version None)
Quarter: 2006Q3

REPORT INFORMATION
  Report Type: 
  Country: None (occurrence: None)
  Receive Date: 20060906
  Receipt Date: 20060822
  Transmission Date: 20061208
  Serious: Yes (Hospitalization)
  Sender: FDA-Public Use
  Company Number: 2006102807

PATIENT
  Age: 73 Year
  Sex: Male

DRUGS (5)
  1. AMLODIPINE [Suspect]
     Indication: DRUG USE FOR UNKNOWN INDICATION
     Dosage: 10 MG (INTERVAL: EVERY DAY), ORAL
     Route: 048
  2. ALLOPURINOL [Suspect]
     Indication: GOUT
     Dosage: ORAL
     Route: 048
     Dates: start: 20060524, end: 20060628
  3. COVERSYL (PERINOPRIL) [Suspect]
     Indication: DRUG USE FOR UNKNOWN INDICATION
     Dosage: 4 MG (INTERVAL: EVERY DAY), ORAL
     Route: 048
  4. ASASANTIN (ACETYLSALICYLIC ACID, DIPYRIDAMOLE) [Suspect]
     Indication: DRUG USE FOR UNKNOWN INDICATION
     Dosage: ORAL
     Route: 048
  5. DAFLON (DIOSMIN) [Concomitant]

REACTIONS (11)
  - CHOLESTASIS [None]
  - CYTOLYTIC HEPATITIS [None]
  - DERMATITIS EXFOLIATIVE [None]
  - GENERAL PHYSICAL HEALTH DETERIORATION [None]
  - HEPATITIS A VIRUS [None]
  - HYPERSENSITIVITY [None]
  - RENAL ATROPHY [None]
  - RENAL FAILURE ACUTE [None]
  - THROMBOCYTOPENIA [None]
  - TOXIC SKIN ERUPTION [None]
  - VARICELLA ZOSTER VIRUS SEROLOGY POSITIVE [None]
